FAERS Safety Report 9226329 (Version 1)
Quarter: 2013Q2

REPORT INFORMATION
  Report Type: Spontaneous
  Country: FR (occurrence: FR)
  Receive Date: 20130411
  Receipt Date: 20130411
  Transmission Date: 20140414
  Serious: Yes (Hospitalization, Other)
  Sender: FDA-Public Use
  Company Number: FR-UCBSA-082625

PATIENT
  Sex: Female

DRUGS (1)
  1. KEPPRA [Suspect]
     Indication: EPILEPSY
     Dosage: 500 MG IN MORNING AND  250 MG IN EVENING
     Route: 048
     Dates: start: 20100830

REACTIONS (5)
  - Metrorrhagia [Unknown]
  - Premature rupture of membranes [Unknown]
  - Thrombocytopenia [Unknown]
  - Premature delivery [Unknown]
  - Pregnancy [Recovered/Resolved]
